FAERS Safety Report 17914537 (Version 1)
Quarter: 2020Q2

REPORT INFORMATION
  Report Type: Report from Study
  Country: EG (occurrence: EG)
  Receive Date: 20200618
  Receipt Date: 20200618
  Transmission Date: 20200714
  Serious: Yes (Other)
  Sender: FDA-Public Use
  Company Number: NVSC2020EG170013

PATIENT
  Age: 70 Year
  Sex: Female

DRUGS (6)
  1. AFINITOR [Suspect]
     Active Substance: EVEROLIMUS
     Indication: METASTASES TO LUNG
     Dosage: 10 MG, QD
     Route: 048
  2. ZOFRAN [Concomitant]
     Active Substance: ONDANSETRON HYDROCHLORIDE
     Indication: PRODUCT USED FOR UNKNOWN INDICATION
     Dosage: UNK (WHEN REQUIRED)
     Route: 065
  3. AFINITOR [Suspect]
     Active Substance: EVEROLIMUS
     Indication: METASTASES TO LIVER
  4. XGEVA [Concomitant]
     Active Substance: DENOSUMAB
     Indication: PRODUCT USED FOR UNKNOWN INDICATION
     Dosage: UNK, QMO
     Route: 065
  5. AFINITOR [Suspect]
     Active Substance: EVEROLIMUS
     Indication: BREAST CANCER METASTATIC
     Dosage: 10 MG, QD
     Route: 048
     Dates: start: 20200214, end: 20200608
  6. INSULIN [Concomitant]
     Active Substance: INSULIN NOS
     Indication: PRODUCT USED FOR UNKNOWN INDICATION
     Dosage: 2 DF (UNITS) , QD
     Route: 065

REACTIONS (5)
  - Blood creatinine increased [Unknown]
  - Pruritus [Recovered/Resolved]
  - Product use in unapproved indication [Not Recovered/Not Resolved]
  - Blood glucose increased [Recovered/Resolved]
  - Vomiting [Recovered/Resolved]

NARRATIVE: CASE EVENT DATE: 20200214
